FAERS Safety Report 22330408 (Version 1)
Quarter: 2023Q2

REPORT INFORMATION
  Report Type: Spontaneous
  Country: US (occurrence: None)
  Receive Date: 20230517
  Receipt Date: 20230517
  Transmission Date: 20230721
  Serious: No
  Sender: FDA-Public Use
  Company Number: US-ROCHE-3092629

PATIENT
  Sex: Male

DRUGS (2)
  1. ACTEMRA [Suspect]
     Active Substance: TOCILIZUMAB
     Indication: Felty^s syndrome
     Route: 058
     Dates: start: 20220413
  2. ACTEMRA [Suspect]
     Active Substance: TOCILIZUMAB

REACTIONS (5)
  - Arthralgia [Unknown]
  - Joint stiffness [Unknown]
  - Off label use [Unknown]
  - Joint swelling [Unknown]
  - Pain [Unknown]
